FAERS Safety Report 11883434 (Version 1)
Quarter: 2015Q4

REPORT INFORMATION
  Report Type: Spontaneous
  Country: FR (occurrence: FR)
  Receive Date: 20151231
  Receipt Date: 20151231
  Transmission Date: 20160305
  Serious: Yes (Hospitalization)
  Sender: FDA-Public Use
  Company Number: FR-BAUSCH-BL-2015-031091

PATIENT
  Age: 66 Year
  Sex: Female

DRUGS (4)
  1. VALACICLOVIR BIOGARAN [Suspect]
     Active Substance: VALACYCLOVIR HYDROCHLORIDE
     Indication: HERPES OPHTHALMIC
     Route: 048
     Dates: start: 20150908, end: 20150909
  2. OMEPRAZOLE. [Concomitant]
     Active Substance: OMEPRAZOLE
     Indication: PRODUCT USED FOR UNKNOWN INDICATION
  3. ACICLOVIR BIOGARAN [Suspect]
     Active Substance: ACYCLOVIR
     Indication: HERPES OPHTHALMIC
     Route: 061
     Dates: start: 20150908, end: 20150909
  4. AQUAREST [Concomitant]
     Indication: PRODUCT USED FOR UNKNOWN INDICATION
     Dates: start: 20150908

REACTIONS (2)
  - Eyelid oedema [Recovered/Resolved]
  - Pruritus [Recovered/Resolved]

NARRATIVE: CASE EVENT DATE: 20150909
